FAERS Safety Report 15398121 (Version 1)
Quarter: 2018Q3

REPORT INFORMATION
  Report Type: Spontaneous
  Country: GB (occurrence: GB)
  Receive Date: 20180918
  Receipt Date: 20180918
  Transmission Date: 20181010
  Serious: Yes (Other)
  Sender: FDA-Public Use
  Company Number: GB-TEVA-2018-GB-955788

PATIENT
  Age: 75 Year
  Sex: Male
  Weight: 57.15 kg

DRUGS (7)
  1. SERTRALINE [Concomitant]
     Active Substance: SERTRALINE HYDROCHLORIDE
     Indication: DEPRESSION
     Dosage: 200 MILLIGRAM DAILY;
     Route: 065
     Dates: start: 20170807, end: 20171031
  2. MIRTAZAPINE. [Concomitant]
     Active Substance: MIRTAZAPINE
     Indication: DEPRESSION
     Dosage: 45 MILLIGRAM DAILY; NIGHT
     Route: 048
     Dates: start: 20170613, end: 20171031
  3. ARIPIPRAZOLE. [Suspect]
     Active Substance: ARIPIPRAZOLE
     Indication: MAJOR DEPRESSION
     Route: 048
     Dates: start: 20170526, end: 20171031
  4. EZETIMIBE. [Concomitant]
     Active Substance: EZETIMIBE
     Indication: CARDIOVASCULAR DISORDER
     Dosage: 10 MILLIGRAM DAILY;
     Route: 048
     Dates: end: 20171031
  5. MELATONIN [Concomitant]
     Active Substance: MELATONIN
     Indication: SLEEP DISORDER
     Dosage: 2 MILLIGRAM DAILY; NIGHT
     Route: 065
     Dates: end: 20171031
  6. DIAZEPAM. [Concomitant]
     Active Substance: DIAZEPAM
     Indication: ANXIETY
     Dosage: 6 MILLIGRAM DAILY;
     Route: 048
     Dates: start: 20170802, end: 20171031
  7. TAMSULOSIN [Concomitant]
     Active Substance: TAMSULOSIN
     Dosage: 400 MICROGRAM DAILY;
     Route: 048
     Dates: end: 20171031

REACTIONS (1)
  - Salivary hypersecretion [Unknown]

NARRATIVE: CASE EVENT DATE: 20170831
